FAERS Safety Report 10292173 (Version 1)
Quarter: 2014Q3

REPORT INFORMATION
  Report Type: Spontaneous
  Country: US (occurrence: US)
  Receive Date: 20140710
  Receipt Date: 20140710
  Transmission Date: 20150326
  Serious: No
  Sender: FDA-Public Use
  Company Number: US-PURDUE-USA-2013-0106541

PATIENT
  Age: 50 Year
  Sex: Female

DRUGS (1)
  1. BUTRANS [Suspect]
     Active Substance: BUPRENORPHINE
     Indication: PAIN
     Dosage: 20 MCG/HR, WEEKLY
     Route: 062
     Dates: start: 201304

REACTIONS (5)
  - Application site pruritus [Not Recovered/Not Resolved]
  - Product quality issue [Unknown]
  - Drug effect decreased [Not Recovered/Not Resolved]
  - Application site erythema [Not Recovered/Not Resolved]
  - Drug ineffective [Not Recovered/Not Resolved]

NARRATIVE: CASE EVENT DATE: 201304
